FAERS Safety Report 6425603-4 (Version None)
Quarter: 2009Q4

REPORT INFORMATION
  Report Type: 
  Country: None (occurrence: None)
  Receive Date: 20091103
  Receipt Date: 20091023
  Transmission Date: 20100525
  Serious: Yes (Hospitalization)
  Sender: FDA-Public Use
  Company Number: US-CELGENEUS-163-21880-09102046

PATIENT
  Sex: Male
  Weight: 73.8 kg

DRUGS (3)
  1. REVLIMID [Suspect]
     Route: 048
     Dates: start: 20091002, end: 20091021
  2. DEXAMETHASONE [Suspect]
     Route: 048
     Dates: start: 20091002, end: 20091021
  3. MELPHALAN [Suspect]
     Route: 065

REACTIONS (1)
  - INTESTINAL OBSTRUCTION [None]
